FAERS Safety Report 24024949 (Version 1)
Quarter: 2024Q2

REPORT INFORMATION
  Report Type: Report from Study
  Country: EG (occurrence: EG)
  Receive Date: 20240628
  Receipt Date: 20240628
  Transmission Date: 20240716
  Serious: No
  Sender: FDA-Public Use
  Company Number: EG-ROCHE-3489098

PATIENT
  Age: 42 Year
  Sex: Female
  Weight: 105.0 kg

DRUGS (3)
  1. PHESGO [Suspect]
     Active Substance: HYALURONIDASE-ZZXF\PERTUZUMAB\TRASTUZUMAB
     Indication: Breast cancer
     Route: 058
     Dates: start: 20230905
  2. TAXOL [Concomitant]
     Active Substance: PACLITAXEL
     Route: 042
  3. TAXOTERE [Concomitant]
     Active Substance: DOCETAXEL
     Route: 042

REACTIONS (1)
  - Alopecia [Not Recovered/Not Resolved]
